FAERS Safety Report 21095185 (Version 2)
Quarter: 2022Q3

REPORT INFORMATION
  Report Type: Spontaneous
  Country: DE (occurrence: DE)
  Receive Date: 20220718
  Receipt Date: 20220728
  Transmission Date: 20221027
  Serious: Yes (Hospitalization, Other)
  Sender: FDA-Public Use
  Company Number: DE-GLENMARK PHARMACEUTICALS-2022GMK073371

PATIENT
  Age: 26 Year
  Sex: Male
  Weight: 60 kg

DRUGS (3)
  1. EBASTINE [Suspect]
     Active Substance: EBASTINE
     Indication: Mast cell activation syndrome
     Dosage: UNK
     Route: 065
     Dates: start: 202111, end: 202202
  2. DESLORATADINE [Suspect]
     Active Substance: DESLORATADINE
     Indication: Mast cell activation syndrome
     Dosage: 5 MILLIGRAM, BID
     Route: 065
     Dates: start: 202110, end: 202203
  3. DNCG [Concomitant]
     Indication: Mast cell activation syndrome
     Dosage: 200 MILLIGRAM, TID, (2-2-2)
     Route: 065
     Dates: start: 201710, end: 201910

REACTIONS (5)
  - Product use in unapproved indication [Unknown]
  - Nephrolithiasis [Unknown]
  - Urinary retention [Recovering/Resolving]
  - Renal colic [Unknown]
  - Urinary tract infection [Unknown]

NARRATIVE: CASE EVENT DATE: 20211201
